FAERS Safety Report 8806000 (Version 1)
Quarter: 2012Q4

REPORT INFORMATION
  Report Type: Spontaneous
  Country: DE (occurrence: None)
  Receive Date: 20120918
  Receipt Date: 20120918
  Transmission Date: 20130627
  Serious: Yes (Life-Threatening, Hospitalization)
  Sender: FDA-Public Use
  Company Number: GER/GER/12/0025887

PATIENT
  Sex: Female
  Weight: 67 kg

DRUGS (17)
  1. METFORMIN (METFORMIN) [Suspect]
     Indication: TYPE 2 DIABETES MELLITUS
     Route: 048
     Dates: start: 20110111
  2. METFORMIN (METFORMIN) [Suspect]
     Indication: TYPE 2 DIABETES MELLITUS
     Dosage: 850 mg, 2 in 1 D, Oral
     Route: 048
     Dates: start: 20120201
  3. ALLOPURINOL [Concomitant]
  4. AMLODIPINE [Concomitant]
  5. CAPTOPRIL [Concomitant]
  6. L-THYROXIN (LEVOTHYROXINE SODIUM) [Concomitant]
  7. DETRUSITO (TOLTERODINE L-TARTRATE) [Concomitant]
  8. TEBONIN FORTE (GINKGO BILOBA EXTRACT) [Concomitant]
  9. STILNOX (ZOLPIDEM TARTRATE) [Concomitant]
  10. REMERON (MIRTAZAPINE) [Concomitant]
  11. TOREM 5 (TORASEMIDE) [Concomitant]
  12. AQUAPHOR 10 (XIPAMIDE) [Concomitant]
  13. ASS100 (ACETYLSALICYLIC ACID) [Concomitant]
  14. PANTOZOL [Concomitant]
  15. BELOC-ZOK MITE (METOPROLOL SUCCINATE) [Concomitant]
  16. NACOM (SINEMET) [Concomitant]
  17. CEFUROXIM (CEFUROXIME SODIUM) [Concomitant]

REACTIONS (3)
  - Lactic acidosis [None]
  - Renal failure acute [None]
  - Atrioventricular block complete [None]
